FAERS Safety Report 8662777 (Version 3)
Quarter: 2012Q4

REPORT INFORMATION
  Report Type: Report from Study
  Country: DE (occurrence: None)
  Receive Date: 20120627
  Receipt Date: 20120905
  Transmission Date: 20130627
  Serious: Yes (Hospitalization)
  Sender: FDA-Public Use
  Company Number: 2012032623

PATIENT
  Age: 60 Year
  Sex: Male

DRUGS (8)
  1. PRIVIGEN [Suspect]
     Indication: SECONDARY IMMUNODEFICIENCY
     Dosage: INFUSION RATE 1.0ML/MIN
     Route: 042
     Dates: start: 20120611, end: 20120611
  2. PRIVIGEN [Suspect]
     Indication: SECONDARY IMMUNODEFICIENCY
     Route: 042
     Dates: start: 20120611, end: 20120611
  3. CITALOPRAM HYDROBROMIDE [Concomitant]
  4. ATACAND /01349502/ (CANDESARTAN CILEXETIL) [Concomitant]
  5. PANTOZOL [Concomitant]
  6. CYMBALTA [Concomitant]
  7. LYRICA [Concomitant]
  8. RITUXIMAB (RITUXIMAB) [Concomitant]

REACTIONS (3)
  - Enterobacter pneumonia [None]
  - Cyanosis [None]
  - Chest discomfort [None]
